FAERS Safety Report 15518693 (Version 5)
Quarter: 2019Q1

REPORT INFORMATION
  Report Type: Spontaneous
  Country: US (occurrence: US)
  Receive Date: 20181017
  Receipt Date: 20190128
  Transmission Date: 20190417
  Serious: Yes (Hospitalization, Other)
  Sender: FDA-Public Use
  Company Number: US-SA-2018SA285258

PATIENT
  Age: 24 Year
  Sex: Female
  Weight: 64 kg

DRUGS (17)
  1. FLUCONAZOLE. [Concomitant]
     Active Substance: FLUCONAZOLE
     Dosage: 200 MG
     Route: 065
     Dates: start: 20181121
  2. RANITIDINE. [Concomitant]
     Active Substance: RANITIDINE
     Dosage: 1 DF, QD
     Route: 048
     Dates: start: 20180830
  3. LEMTRADA [Suspect]
     Active Substance: ALEMTUZUMAB
     Dosage: UNK
     Route: 041
     Dates: start: 201809, end: 20180913
  4. PREDNISONE. [Concomitant]
     Active Substance: PREDNISONE
     Dosage: 20 MG
     Route: 065
     Dates: start: 20181018
  5. TEMAZEPAM. [Concomitant]
     Active Substance: TEMAZEPAM
     Dosage: 30 MG
     Route: 065
     Dates: start: 20180115
  6. BENZONATATE. [Concomitant]
     Active Substance: BENZONATATE
     Dosage: 200 MG
     Dates: start: 20181018
  7. METRONIDAZOLE. [Concomitant]
     Active Substance: METRONIDAZOLE
     Dosage: 500 MG
     Route: 065
     Dates: start: 20180529
  8. ALPRAZOLAM. [Concomitant]
     Active Substance: ALPRAZOLAM
     Dosage: 0.5 MG
     Route: 065
     Dates: start: 20180918
  9. AMOXICILLIN AND CLAVUNATE POTASSIUM [Concomitant]
     Dosage: UNK
     Route: 065
     Dates: start: 20181010
  10. CEFDINIR. [Concomitant]
     Active Substance: CEFDINIR
     Dosage: 300 MG
     Route: 065
     Dates: start: 20180929
  11. DECARA [COLECALCIFEROL] [Concomitant]
     Dosage: 50000 U
     Route: 065
     Dates: start: 20180410
  12. ACYCLOVIR [ACICLOVIR] [Concomitant]
     Active Substance: ACYCLOVIR
     Dosage: 400 MG, BID
     Route: 048
     Dates: start: 20181110
  13. ASHLYNA [Concomitant]
     Active Substance: ETHINYL ESTRADIOL\LEVONORGESTREL
     Dosage: 1 DF
     Route: 048
     Dates: start: 20180826
  14. CYCLOBENZAPRINE. [Concomitant]
     Active Substance: CYCLOBENZAPRINE
     Dosage: UNK
     Route: 065
     Dates: start: 20180831
  15. DOXYCYCLINE HYCLATE. [Concomitant]
     Active Substance: DOXYCYCLINE HYCLATE
     Dosage: 100 MG
     Route: 065
     Dates: start: 20180928
  16. HYDROXYZINE HCL [Concomitant]
     Active Substance: HYDROXYZINE HYDROCHLORIDE
     Dosage: 1 DF, QD
     Route: 048
     Dates: start: 20180830
  17. NAPROXEN. [Concomitant]
     Active Substance: NAPROXEN
     Dosage: 500 MG
     Route: 065
     Dates: start: 20180907

REACTIONS (36)
  - Chest pain [Unknown]
  - Urine ketone body present [Unknown]
  - Haematocrit decreased [Unknown]
  - Insomnia [Unknown]
  - Cough [Unknown]
  - Pleural effusion [Recovered/Resolved]
  - Urinary tract infection [Unknown]
  - Blood urine present [Unknown]
  - White blood cells urine positive [Unknown]
  - Pyrexia [Recovered/Resolved]
  - Nervousness [Unknown]
  - Bacterial test [Unknown]
  - Insomnia [Unknown]
  - Pneumonia [Recovered/Resolved]
  - Neutrophil count increased [Unknown]
  - White blood cell count increased [Recovered/Resolved]
  - Dyspnoea [Recovered/Resolved]
  - Constipation [Unknown]
  - Blood glucose increased [Unknown]
  - Leukocytosis [Recovering/Resolving]
  - Urine analysis abnormal [Unknown]
  - Dyspepsia [Unknown]
  - Pericarditis [Unknown]
  - Weight increased [Unknown]
  - Depression [Unknown]
  - Thyroid disorder [Unknown]
  - Nausea [Unknown]
  - Neutrophil percentage increased [Unknown]
  - Protein urine present [Unknown]
  - Headache [Unknown]
  - Chest pain [Recovering/Resolving]
  - Confusional state [Unknown]
  - Intervertebral disc degeneration [Unknown]
  - Pneumonitis [Unknown]
  - Wheezing [Unknown]
  - Tachycardia [Unknown]

NARRATIVE: CASE EVENT DATE: 20180918
